FAERS Safety Report 7749027-2 (Version None)
Quarter: 2011Q3

REPORT INFORMATION
  Report Type: 
  Country: None (occurrence: None)
  Receive Date: 20110909
  Receipt Date: 20110825
  Transmission Date: 20111222
  Serious: Yes (Hospitalization)
  Sender: FDA-Public Use
  Company Number: AUR-APL-2011-00323

PATIENT
  Age: 84 Year
  Sex: Male
  Weight: 78.5 kg

DRUGS (16)
  1. METOPROLOL SUCCINATE [Suspect]
     Indication: HYPERTENSION
     Dosage: 25 MG (12.5 MG, 2 IN 1 D), ORAL
     Route: 048
     Dates: start: 20090101
  2. PREGABALIN [Suspect]
     Indication: DIABETIC NEUROPATHY
     Dosage: ORAL
     Route: 048
     Dates: start: 20101203
  3. METFORMIN HCL [Concomitant]
  4. PROSCAR [Concomitant]
  5. NORVASC [Concomitant]
  6. VYTORIN [Concomitant]
  7. IRON (IRON) [Concomitant]
  8. ACCUPRIL [Concomitant]
  9. HYDROCHLOROTHIAZIDE [Concomitant]
  10. IBANDRONATE SODIUM [Concomitant]
  11. CALCITRIOL [Concomitant]
  12. CALCIUM CARBONATE [Concomitant]
  13. CHONDROITIN/GLUCOSAMINE (CHONDROITIN W/GLUCOSMINE) [Concomitant]
  14. MULTIVITAMINS, PLAIN (MULTIVITAMINS, PLAIN) [Concomitant]
  15. ASPIRIN [Concomitant]
  16. CALCIUM CARBONATE [Concomitant]

REACTIONS (4)
  - TREMOR [None]
  - DEHYDRATION [None]
  - HYPOTENSION [None]
  - BRADYCARDIA [None]
